FAERS Safety Report 12402682 (Version 2)
Quarter: 2016Q2

REPORT INFORMATION
  Report Type: Spontaneous
  Country: US (occurrence: US)
  Receive Date: 20160525
  Receipt Date: 20160527
  Transmission Date: 20160815
  Serious: Yes (Other)
  Sender: FDA-Public Use
  Company Number: US-SA-2016SA066813

PATIENT
  Age: 79 Year
  Sex: Female

DRUGS (37)
  1. LANTUS [Suspect]
     Active Substance: INSULIN GLARGINE
     Dosage: DOSE:15 UNIT(S)
     Route: 065
  2. FUROSEMIDE. [Concomitant]
     Active Substance: FUROSEMIDE
     Route: 048
     Dates: start: 20150619
  3. VITAMIN B12 [Concomitant]
     Active Substance: CYANOCOBALAMIN
     Route: 048
     Dates: start: 201412
  4. FIBERCON [Concomitant]
     Active Substance: CALCIUM POLYCARBOPHIL
     Route: 048
     Dates: start: 201501, end: 20150614
  5. CENTRUM SILVER [Concomitant]
     Active Substance: MINERALS\VITAMINS
     Route: 048
     Dates: start: 2000
  6. COQ10 [Concomitant]
     Active Substance: UBIDECARENONE
     Route: 048
     Dates: start: 2011
  7. HYDROCHLOROTHIAZIDE/VALSARTAN [Concomitant]
     Dosage: TOTAL DAILY DOSE : 320/12.5
     Route: 048
     Dates: start: 20130722
  8. LANTUS [Suspect]
     Active Substance: INSULIN GLARGINE
     Dosage: DOSE:12 UNIT(S)
     Route: 065
     Dates: start: 20150428
  9. FUROSEMIDE. [Concomitant]
     Active Substance: FUROSEMIDE
     Route: 048
     Dates: start: 201412, end: 20150618
  10. MIRALAX [Concomitant]
     Active Substance: POLYETHYLENE GLYCOL 3350
     Route: 048
     Dates: start: 20081119
  11. NOVOLOG [Concomitant]
     Active Substance: INSULIN ASPART
     Route: 058
     Dates: start: 20120625, end: 20150412
  12. AMLODIPINE [Concomitant]
     Active Substance: AMLODIPINE BESYLATE
     Route: 048
     Dates: start: 20150415, end: 20150420
  13. PRAVASTATIN [Concomitant]
     Active Substance: PRAVASTATIN\PRAVASTATIN SODIUM
     Route: 048
     Dates: start: 20121015
  14. METHYLPHENIDATE. [Concomitant]
     Active Substance: METHYLPHENIDATE
     Route: 048
     Dates: start: 2005
  15. CYMBALTA [Concomitant]
     Active Substance: DULOXETINE HYDROCHLORIDE
     Dates: start: 2000
  16. CALCIUM [Concomitant]
     Active Substance: CALCIUM
     Route: 048
     Dates: start: 2005
  17. SYNTHROID [Concomitant]
     Active Substance: LEVOTHYROXINE SODIUM
     Route: 048
     Dates: start: 20140124
  18. PERDIEM [Concomitant]
     Active Substance: SENNOSIDES
     Route: 048
     Dates: start: 201412
  19. DOXAZOSIN MESILATE [Concomitant]
     Active Substance: DOXAZOSIN MESYLATE
     Route: 048
     Dates: start: 2012
  20. VITAMIN D [Concomitant]
     Active Substance: CHOLECALCIFEROL
     Route: 048
     Dates: start: 2013
  21. VITAMIN C [Concomitant]
     Active Substance: ASCORBIC ACID
     Route: 048
     Dates: start: 2000
  22. RESTASIS [Concomitant]
     Active Substance: CYCLOSPORINE
     Dosage: DOSE UNITS : DROPS?ROUTE OF ADMINISTRATION : OPHTHALMIC
     Dates: start: 2012
  23. LANTUS [Suspect]
     Active Substance: INSULIN GLARGINE
     Dosage: DOSE:8 UNIT(S)
     Route: 065
     Dates: start: 20150428, end: 20150428
  24. LANTUS [Suspect]
     Active Substance: INSULIN GLARGINE
     Dosage: DOSE:12 UNIT(S)
     Route: 065
  25. AMLODIPINE [Concomitant]
     Active Substance: AMLODIPINE BESYLATE
     Route: 048
     Dates: start: 20150421
  26. SUCRALFATE. [Concomitant]
     Active Substance: SUCRALFATE
     Route: 048
     Dates: start: 201412
  27. PLAVIX [Concomitant]
     Active Substance: CLOPIDOGREL BISULFATE
     Route: 048
     Dates: start: 20081119
  28. OMEGA-3 ACIDS [Concomitant]
     Active Substance: OMEGA-3 FATTY ACIDS
     Route: 048
     Dates: start: 2005
  29. NEURONTIN [Concomitant]
     Active Substance: GABAPENTIN
     Route: 048
     Dates: start: 201411
  30. PLAQUENIL [Concomitant]
     Active Substance: HYDROXYCHLOROQUINE SULFATE
     Dates: start: 201502
  31. METHOTREXATE [Concomitant]
     Active Substance: METHOTREXATE
     Route: 048
     Dates: start: 20150506, end: 20150614
  32. POTASSIUM [Concomitant]
     Active Substance: POTASSIUM
     Route: 048
     Dates: start: 20150124
  33. FIBERCON [Concomitant]
     Active Substance: CALCIUM POLYCARBOPHIL
     Route: 048
     Dates: start: 20150615
  34. ARTIFICIAL TEARS [Concomitant]
     Active Substance: GLYCERIN\HYPROMELLOSES\POLYETHYLENE GLYCOL 400
     Dates: start: 20141210
  35. TRAMADOL. [Concomitant]
     Active Substance: TRAMADOL
     Route: 048
     Dates: start: 20150515, end: 20150527
  36. METHOTREXATE [Concomitant]
     Active Substance: METHOTREXATE
     Route: 048
     Dates: start: 20150615
  37. METFORMIN [Concomitant]
     Active Substance: METFORMIN HYDROCHLORIDE
     Route: 048
     Dates: start: 20140728

REACTIONS (3)
  - Hyperhidrosis [Recovered/Resolved]
  - Asthenia [Recovered/Resolved]
  - Hypoglycaemic unconsciousness [Recovered/Resolved]

NARRATIVE: CASE EVENT DATE: 20150617
